FAERS Safety Report 14754420 (Version 7)
Quarter: 2019Q3

REPORT INFORMATION
  Report Type: Spontaneous
  Country: ES (occurrence: ES)
  Receive Date: 20180412
  Receipt Date: 20190717
  Transmission Date: 20191004
  Serious: Yes (Hospitalization, Other)
  Sender: FDA-Public Use
  Company Number: PHHY2018ES062565

PATIENT
  Age: 43 Year
  Sex: Female

DRUGS (5)
  1. ACICLOVIR [Suspect]
     Active Substance: ACYCLOVIR
     Indication: ANTIVIRAL PROPHYLAXIS
     Dosage: 800 MG, QD (1 DAILY COMP)
     Route: 048
     Dates: start: 20171011
  2. ACICLOVIR [Suspect]
     Active Substance: ACYCLOVIR
     Dosage: 250 MG, QD
     Route: 048
  3. LEVOFLOXACIN. [Suspect]
     Active Substance: LEVOFLOXACIN
     Indication: ANTIBIOTIC PROPHYLAXIS
     Dosage: 500 MG, QD (OCCASIONALLY IF NEEDED)
     Route: 048
     Dates: start: 20171108, end: 20171112
  4. METHOTREXATE. [Suspect]
     Active Substance: METHOTREXATE
     Indication: T-CELL LYMPHOMA STAGE IV
     Dosage: 5 G/M2, TOTAL
     Route: 042
     Dates: start: 20171031, end: 20171031
  5. SEPTRIN FORTE [Suspect]
     Active Substance: SULFAMETHOXAZOLE\TRIMETHOPRIM
     Indication: PROPHYLAXIS
     Dosage: 4 DF, QW
     Route: 048
     Dates: start: 20171007, end: 20171112

REACTIONS (1)
  - Stevens-Johnson syndrome [Unknown]

NARRATIVE: CASE EVENT DATE: 20171111
